FAERS Safety Report 9310899 (Version 1)
Quarter: 2013Q2

REPORT INFORMATION
  Report Type: Spontaneous
  Country: US (occurrence: None)
  Receive Date: 20130523
  Receipt Date: 20130523
  Transmission Date: 20140414
  Serious: Yes (Other)
  Sender: FDA-Public Use
  Company Number: None

PATIENT
  Age: 49 Year
  Sex: Male

DRUGS (1)
  1. ENBREL 50MG AMGEN [Suspect]
     Indication: ANKYLOSING SPONDYLITIS
     Dosage: SUB-Q
     Route: 058
     Dates: start: 20130517

REACTIONS (4)
  - Headache [None]
  - Anxiety [None]
  - Dyspnoea [None]
  - Speech disorder [None]
